FAERS Safety Report 24832253 (Version 1)
Quarter: 2025Q1

REPORT INFORMATION
  Report Type: Spontaneous
  Country: FR (occurrence: FR)
  Receive Date: 20250110
  Receipt Date: 20250110
  Transmission Date: 20250409
  Serious: Yes (Other)
  Sender: TEVA
  Company Number: FR-TEVA-VS-3282393

PATIENT
  Sex: Female
  Weight: 68 kg

DRUGS (6)
  1. METFORMIN [Suspect]
     Active Substance: METFORMIN HYDROCHLORIDE
     Indication: Type 2 diabetes mellitus
     Route: 048
  2. FERROUS SULFATE [Suspect]
     Active Substance: FERROUS SULFATE
     Indication: Anaemia
     Route: 048
  3. REPAGLINIDE [Suspect]
     Active Substance: REPAGLINIDE
     Indication: Type 2 diabetes mellitus
     Route: 048
  4. FOLIC ACID [Suspect]
     Active Substance: FOLIC ACID
     Indication: Anaemia
     Route: 048
  5. PERINDOPRIL [Suspect]
     Active Substance: PERINDOPRIL
     Indication: Hypertension
     Route: 048
  6. FOSINOPRIL [Suspect]
     Active Substance: FOSINOPRIL
     Indication: Product used for unknown indication
     Route: 065

REACTIONS (8)
  - Diabetes mellitus inadequate control [Unknown]
  - Vomiting [Recovering/Resolving]
  - Nausea [Recovering/Resolving]
  - Abdominal pain [Recovering/Resolving]
  - Gastrointestinal disorder [Recovering/Resolving]
  - Hypersensitivity [Recovering/Resolving]
  - Hypersensitivity [Recovering/Resolving]
  - Off label use [Unknown]

NARRATIVE: CASE EVENT DATE: 20160715
